FAERS Safety Report 11928310 (Version 1)
Quarter: 2016Q1

REPORT INFORMATION
  Report Type: Report from Study
  Country: BR (occurrence: BR)
  Receive Date: 20160119
  Receipt Date: 20160119
  Transmission Date: 20160526
  Serious: Yes (Hospitalization)
  Sender: FDA-Public Use
  Company Number: PHHY2016BR006138

PATIENT
  Sex: Male
  Weight: 53 kg

DRUGS (1)
  1. GLIVEC [Suspect]
     Active Substance: IMATINIB MESYLATE
     Indication: CHRONIC MYELOID LEUKAEMIA
     Dosage: 400 MG, QD, AT LUNCH
     Route: 065
     Dates: start: 2003

REACTIONS (8)
  - Nervousness [Unknown]
  - Mood altered [Unknown]
  - Eating disorder [Unknown]
  - Impaired healing [Recovering/Resolving]
  - Pyrexia [Unknown]
  - Post procedural complication [Unknown]
  - Fatigue [Unknown]
  - Wound secretion [Recovering/Resolving]

NARRATIVE: CASE EVENT DATE: 2009
